FAERS Safety Report 4767341-X (Version None)
Quarter: 2005Q3

REPORT INFORMATION
  Report Type: 
  Country: None (occurrence: None)
  Receive Date: 20050913
  Receipt Date: 20050225
  Transmission Date: 20060218
  Serious: Yes (Hospitalization, Congenital Anomaly)
  Sender: FDA-Public Use
  Company Number: FR-GILEAD-2005-0008095

PATIENT
  Sex: Male
  Weight: 3.91 kg

DRUGS (8)
  1. VIREAD [Suspect]
     Route: 064
     Dates: start: 20020429, end: 20020704
  2. HIVID [Suspect]
     Route: 064
     Dates: start: 20020429, end: 20020704
  3. KALETRA [Suspect]
     Route: 064
     Dates: start: 20020429, end: 20020704
  4. RETROVIR [Suspect]
     Dates: start: 20020704
  5. ABACAVIR [Concomitant]
     Route: 064
     Dates: end: 20020429
  6. LAMIVUDINE [Concomitant]
     Route: 064
     Dates: end: 20020429
  7. NEVIRAPINE [Concomitant]
     Route: 064
     Dates: end: 20020429
  8. DIDANOSINE [Concomitant]
     Route: 064
     Dates: end: 20020429

REACTIONS (8)
  - ABNORMAL BEHAVIOUR [None]
  - CAESAREAN SECTION [None]
  - CHROMOSOME ABNORMALITY [None]
  - DEVELOPMENTAL DELAY [None]
  - DRUG EXPOSURE DURING PREGNANCY [None]
  - MENTAL RETARDATION SEVERITY UNSPECIFIED [None]
  - SLEEP DISORDER [None]
  - SPEECH DISORDER DEVELOPMENTAL [None]
